FAERS Safety Report 8282968-9 (Version None)
Quarter: 2012Q2

REPORT INFORMATION
  Report Type: 
  Country: None (occurrence: None)
  Receive Date: 20120413
  Receipt Date: 20120409
  Transmission Date: 20120825
  Serious: Yes (Hospitalization)
  Sender: FDA-Public Use
  Company Number: US-GILEAD-2012-0053415

PATIENT
  Sex: Male

DRUGS (11)
  1. COMBIVENT [Concomitant]
  2. SIMVASTATIN [Concomitant]
  3. ASPIRIN [Concomitant]
  4. LYRICA [Concomitant]
  5. HUMALOG [Concomitant]
  6. ATIVAN [Concomitant]
  7. AVAPRO [Concomitant]
  8. VICODIN [Concomitant]
  9. LETAIRIS [Suspect]
     Indication: PULMONARY HYPERTENSION
     Dosage: 5 MG, UNK
     Route: 048
     Dates: start: 20120222, end: 20120323
  10. TREPROSTINIL [Concomitant]
     Indication: PULMONARY HYPERTENSION
     Dosage: UNK
     Dates: start: 20120222
  11. VITAMIN B12 NOS [Concomitant]

REACTIONS (3)
  - ACUTE RESPIRATORY FAILURE [None]
  - ATRIAL FIBRILLATION [None]
  - FLUID RETENTION [None]
